FAERS Safety Report 25468328 (Version 1)
Quarter: 2025Q2

REPORT INFORMATION
  Report Type: Spontaneous
  Country: CN (occurrence: CN)
  Receive Date: 20250623
  Receipt Date: 20250623
  Transmission Date: 20250717
  Serious: Yes (Life-Threatening, Hospitalization)
  Sender: BAYER HEALTHCARE PHARMACEUTICALS INC.
  Company Number: CN-BAYER-2025A082790

PATIENT
  Age: 80 Year
  Sex: Male
  Weight: 72.5 kg

DRUGS (1)
  1. ULTRAVIST [Suspect]
     Active Substance: IOPROMIDE
     Indication: Imaging procedure
     Route: 058
     Dates: start: 20250506, end: 20250506

REACTIONS (10)
  - Loss of consciousness [None]
  - Unresponsive to stimuli [None]
  - Nephropathy toxic [Recovering/Resolving]
  - Cardiac failure [None]
  - Dyspnoea [None]
  - Sinus tachycardia [None]
  - Rales [None]
  - Cyanosis [None]
  - Product prescribing issue [None]
  - Incorrect route of product administration [None]

NARRATIVE: CASE EVENT DATE: 20250506
